FAERS Safety Report 6339280-4 (Version None)
Quarter: 2009Q3

REPORT INFORMATION
  Report Type: 
  Country: None (occurrence: None)
  Receive Date: 20090903
  Receipt Date: 20090901
  Transmission Date: 20100115
  Serious: Yes (Other)
  Sender: FDA-Public Use
  Company Number: A0805358A

PATIENT
  Age: 69 Year
  Sex: Male

DRUGS (2)
  1. ADVAIR HFA [Suspect]
     Indication: CHRONIC OBSTRUCTIVE PULMONARY DISEASE
     Dosage: 1PUFF PER DAY
     Route: 055
     Dates: start: 20050101
  2. NO CONCURRENT MEDICATION [Concomitant]

REACTIONS (2)
  - HAEMORRHAGE [None]
  - WEIGHT INCREASED [None]
